FAERS Safety Report 12432090 (Version 1)
Quarter: 2016Q2

REPORT INFORMATION
  Report Type: Spontaneous
  Country: US (occurrence: None)
  Receive Date: 20160602
  Receipt Date: 20160602
  Transmission Date: 20160815
  Serious: Yes (Disabling)
  Sender: FDA-Public Use
  Company Number: None

PATIENT
  Age: 68 Year
  Sex: Female
  Weight: 54.43 kg

DRUGS (7)
  1. OVAR [Concomitant]
  2. FLONASE [Concomitant]
     Active Substance: FLUTICASONE PROPIONATE
  3. LEVAFLOXIN, 500 MG [Suspect]
     Active Substance: LEVOFLOXACIN
     Indication: OTITIS MEDIA
     Route: 048
     Dates: start: 20160331, end: 20160404
  4. MULTI-VITAMIN [Concomitant]
     Active Substance: .ALPHA.-TOCOPHEROL ACETATE, DL-\ASCORBIC ACID\CYANOCOBALAMIN\FLUORIDE ION\FOLIC ACID\NIACIN\PYRIDOXINE\RIBOFLAVIN\THIAMINE\VITAMIN A\VITAMIN D
  5. FISH OIL [Concomitant]
     Active Substance: FISH OIL
  6. PROAIR HFA [Concomitant]
     Active Substance: ALBUTEROL SULFATE
  7. VITAMIN B12 [Concomitant]
     Active Substance: CYANOCOBALAMIN

REACTIONS (2)
  - Tendon pain [None]
  - Gait disturbance [None]

NARRATIVE: CASE EVENT DATE: 20160404
